FAERS Safety Report 21701973 (Version 4)
Quarter: 2022Q4

REPORT INFORMATION
  Report Type: Report from Study
  Country: US (occurrence: None)
  Receive Date: 20221208
  Receipt Date: 20221228
  Transmission Date: 20230113
  Serious: Yes (Hospitalization)
  Sender: FDA-Public Use
  Company Number: US-Eisai Medical Research-EC-2022-129510

PATIENT
  Age: 63 Year
  Sex: Male
  Weight: 71.8 kg

DRUGS (18)
  1. LENVATINIB [Suspect]
     Active Substance: LENVATINIB
     Indication: Renal cell carcinoma
     Route: 048
     Dates: start: 20220922, end: 20221116
  2. BELZUTIFAN [Suspect]
     Active Substance: BELZUTIFAN
     Indication: Renal cell carcinoma
     Route: 048
     Dates: start: 20220922, end: 20221116
  3. SILVER SULFADIAZENE [Concomitant]
     Active Substance: SILVER SULFADIAZINE
     Dates: start: 202202
  4. METOPROLOL [Concomitant]
     Active Substance: METOPROLOL
     Dates: start: 202003
  5. OXYCODONE [Concomitant]
     Active Substance: OXYCODONE
     Dates: start: 20211025
  6. CHOLECALCIFEROL [Concomitant]
     Active Substance: CHOLECALCIFEROL
     Dates: start: 201807
  7. POTASSIUM CHLORIDE [Concomitant]
     Active Substance: POTASSIUM CHLORIDE
     Dates: start: 201807
  8. LANSOPRAZOLE [Concomitant]
     Active Substance: LANSOPRAZOLE
     Dates: start: 20220820
  9. LEVOTHYROXINE SODIUM [Concomitant]
     Active Substance: LEVOTHYROXINE SODIUM
     Dates: start: 202207
  10. COLACE [Concomitant]
     Active Substance: DOCUSATE SODIUM
     Dates: start: 202112
  11. MIRALAX [Concomitant]
     Active Substance: POLYETHYLENE GLYCOL 3350
     Dates: start: 202204
  12. MORPHINE [Concomitant]
     Active Substance: MORPHINE
     Dates: start: 20221006
  13. LOSARTAN [Concomitant]
     Active Substance: LOSARTAN
     Dates: start: 20220929
  14. SIMETHICONE (DIMETHICONE) [Concomitant]
     Active Substance: DIMETHICONE
     Dates: start: 202209
  15. CHLORHEXIDINE [Concomitant]
     Active Substance: CHLORHEXIDINE
     Dates: start: 20221020
  16. GABAPENTIN [Concomitant]
     Active Substance: GABAPENTIN
     Dates: start: 20221025
  17. ONDANSETRON [Concomitant]
     Active Substance: ONDANSETRON
     Dates: start: 20221124, end: 20221124
  18. CEFEPIME [Concomitant]
     Active Substance: CEFEPIME HYDROCHLORIDE
     Dates: start: 20221127, end: 20221127

REACTIONS (1)
  - Dehydration [Not Recovered/Not Resolved]

NARRATIVE: CASE EVENT DATE: 20221127
